FAERS Safety Report 4936159-7 (Version None)
Quarter: 2006Q1

REPORT INFORMATION
  Report Type: 
  Country: None (occurrence: None)
  Receive Date: 20060307
  Receipt Date: 20051118
  Transmission Date: 20060701
  Serious: No
  Sender: FDA-Public Use
  Company Number: US-GLAXOSMITHKLINE-A0582889A

PATIENT
  Age: 72 Year
  Sex: Female

DRUGS (8)
  1. REQUIP [Suspect]
     Indication: RESTLESS LEGS SYNDROME
     Dosage: 2MG PER DAY
     Route: 048
  2. DARVOCET-N 100 [Concomitant]
  3. FOSAMAX [Concomitant]
  4. SALICYLATE [Concomitant]
  5. LOVASTATIN [Concomitant]
  6. HYDROCHLOROTHIAZIDE [Concomitant]
  7. PAROXETINE [Concomitant]
  8. CARBIDOPA AND LEVODOPA [Concomitant]

REACTIONS (1)
  - NAUSEA [None]
